FAERS Safety Report 5815063-6 (Version None)
Quarter: 2008Q3

REPORT INFORMATION
  Report Type: 
  Country: None (occurrence: None)
  Receive Date: 20080718
  Receipt Date: 20080714
  Transmission Date: 20090109
  Serious: Yes (Other)
  Sender: FDA-Public Use
  Company Number: US-BAYER-200822512NA

PATIENT
  Age: 40 Year
  Sex: Female
  Weight: 57 kg

DRUGS (3)
  1. CLIMARA [Suspect]
     Indication: HORMONE REPLACEMENT THERAPY
     Dates: start: 20080527
  2. CLIMARA [Suspect]
     Dates: start: 20080517
  3. CLIMARA [Suspect]
     Dates: start: 20080415

REACTIONS (3)
  - AMNESIA [None]
  - FEELING ABNORMAL [None]
  - FEELING DRUNK [None]
